FAERS Safety Report 12527864 (Version 2)
Quarter: 2016Q3

REPORT INFORMATION
  Report Type: Other
  Country: US (occurrence: US)
  Receive Date: 20160705
  Receipt Date: 20160720
  Transmission Date: 20161109
  Serious: Yes (Other)
  Sender: FDA-Public Use
  Company Number: US-SHEFFIELD PHARMACEUTICALS, LLC-1054645

PATIENT
  Age: 26 Year
  Sex: Male

DRUGS (1)
  1. EAR WAX KIT WELL AT WALGREENS [Suspect]
     Active Substance: CARBAMIDE PEROXIDE
     Indication: EXCESSIVE CERUMEN PRODUCTION

REACTIONS (2)
  - Ear infection [None]
  - Tympanic membrane perforation [Not Recovered/Not Resolved]
